FAERS Safety Report 25064982 (Version 1)
Quarter: 2025Q1

REPORT INFORMATION
  Report Type: Spontaneous
  Country: CN (occurrence: CN)
  Receive Date: 20250311
  Receipt Date: 20250311
  Transmission Date: 20250409
  Serious: Yes (Other)
  Sender: Kenvue
  Company Number: CN-KENVUE-20250301744

PATIENT

DRUGS (6)
  1. CHILDRENS MOTRIN [Suspect]
     Active Substance: IBUPROFEN
     Indication: Pyrexia
     Dosage: 10 MILLILITER, ONCE A DAY
     Route: 048
     Dates: start: 20250223, end: 20250223
  2. NICARDIPINE [Suspect]
     Active Substance: NICARDIPINE
     Indication: Brain stem haemorrhage
     Dosage: 30 MILLIGRAM, ONCE A DAY (PUMP INJECTION)
     Dates: start: 20250213, end: 20250223
  3. NICARDIPINE [Suspect]
     Active Substance: NICARDIPINE
     Indication: Hypertension
     Dates: start: 20250223, end: 20250223
  4. SODIUM CHLORIDE [Suspect]
     Active Substance: SODIUM CHLORIDE
     Indication: Vehicle solution use
     Dosage: 50 MILLILITER, ONCE A DAY (PUMP INJECTION )
     Dates: start: 20250213, end: 20250223
  5. SODIUM CHLORIDE [Suspect]
     Active Substance: SODIUM CHLORIDE
     Indication: Brain stem haemorrhage
  6. SODIUM CHLORIDE [Suspect]
     Active Substance: SODIUM CHLORIDE
     Indication: Hypertension

REACTIONS (2)
  - Hypotension [Recovered/Resolved]
  - Off label use [Unknown]

NARRATIVE: CASE EVENT DATE: 20250223
